FAERS Safety Report 10341951 (Version 1)
Quarter: 2014Q3

REPORT INFORMATION
  Report Type: Spontaneous
  Country: DE (occurrence: None)
  Receive Date: 20140723
  Receipt Date: 20140723
  Transmission Date: 20150326
  Serious: Yes (Hospitalization, Other)
  Sender: FDA-Public Use
  Company Number: IMP_07737_2014

PATIENT
  Age: 41 Year
  Sex: Male

DRUGS (4)
  1. ETOMIDATE. [Concomitant]
     Active Substance: ETOMIDATE
  2. SUCCINYLCHOLINE [Concomitant]
     Active Substance: SUCCINYLCHOLINE
  3. ELECTROCONVULSIVE THERAPY [Suspect]
     Active Substance: UNSPECIFIED INGREDIENT
     Indication: DEPRESSION
     Dosage: ([FREQUENCY 50 HZ, PULSE WIDTH 0.5 MSEC, DURATION 6.7 SEC, CHARGE DELIVERED 299 MC])
  4. BUPROPION (BUPROPION) [Suspect]
     Active Substance: BUPROPION
     Indication: DEPRESSION

REACTIONS (3)
  - Status epilepticus [None]
  - Depression [None]
  - No therapeutic response [None]
